FAERS Safety Report 4681247-6 (Version None)
Quarter: 2005Q2

REPORT INFORMATION
  Report Type: 
  Country: None (occurrence: None)
  Receive Date: 20050601
  Receipt Date: 20050323
  Transmission Date: 20051028
  Serious: Yes (Hospitalization, Other)
  Sender: FDA-Public Use
  Company Number: 200511044BWH

PATIENT
  Age: 54 Year
  Sex: Female
  Weight: 67.1324 kg

DRUGS (5)
  1. AVELOX [Suspect]
     Indication: BRONCHITIS
     Dosage: 400 MG, QD, ORAL
     Route: 048
     Dates: start: 20030916, end: 20030917
  2. NEXIUM [Concomitant]
  3. PREVACID [Concomitant]
  4. PREMARINA [Concomitant]
  5. ALBUTEROL [Concomitant]

REACTIONS (24)
  - ANAPHYLACTIC REACTION [None]
  - APHASIA [None]
  - ATRIOVENTRICULAR BLOCK FIRST DEGREE [None]
  - BLEPHAROSPASM [None]
  - BRONCHOSPASM [None]
  - CEREBRAL DISORDER [None]
  - DRUG HYPERSENSITIVITY [None]
  - DYSPNOEA [None]
  - ELECTROCARDIOGRAM QT PROLONGED [None]
  - EYE SWELLING [None]
  - INSOMNIA [None]
  - NAIL DISCOLOURATION [None]
  - NAUSEA [None]
  - NERVOUSNESS [None]
  - OCULAR HYPERAEMIA [None]
  - OXYGEN SATURATION DECREASED [None]
  - PALPITATIONS [None]
  - PULMONARY VALVE INCOMPETENCE [None]
  - SWELLING FACE [None]
  - THROAT TIGHTNESS [None]
  - TREMOR [None]
  - TRICUSPID VALVE INCOMPETENCE [None]
  - URTICARIA GENERALISED [None]
  - VOMITING [None]
